FAERS Safety Report 5095203-X (Version None)
Quarter: 2006Q3

REPORT INFORMATION
  Report Type: 
  Country: None (occurrence: None)
  Receive Date: 20060901
  Receipt Date: 20060824
  Transmission Date: 20061208
  Serious: Yes (Hospitalization)
  Sender: FDA-Public Use
  Company Number: FR-GLAXOSMITHKLINE-B0435434A

PATIENT
  Age: 1 Year
  Sex: Female

DRUGS (3)
  1. LAMICTAL [Suspect]
     Indication: GRAND MAL CONVULSION
     Route: 048
     Dates: start: 20060609, end: 20060630
  2. DEPAKENE [Concomitant]
     Indication: EPILEPSY
     Route: 048
     Dates: start: 20051118
  3. RIVOTRIL [Concomitant]
     Indication: GRAND MAL CONVULSION
     Route: 048
     Dates: start: 20051124

REACTIONS (2)
  - LEUKOCYTOCLASTIC VASCULITIS [None]
  - RASH MACULO-PAPULAR [None]
